FAERS Safety Report 11900648 (Version 2)
Quarter: 2016Q1

REPORT INFORMATION
  Report Type: Spontaneous
  Country: BR (occurrence: BR)
  Receive Date: 20160108
  Receipt Date: 20160108
  Transmission Date: 20160526
  Serious: Yes (Hospitalization)
  Sender: FDA-Public Use
  Company Number: BR-ELI_LILLY_AND_COMPANY-BR201512008859

PATIENT
  Sex: Female
  Weight: 60.5 kg

DRUGS (12)
  1. GEMZAR [Suspect]
     Active Substance: GEMCITABINE HYDROCHLORIDE
     Indication: BILIARY CANCER METASTATIC
     Dosage: 1593 MG, CYCLICAL
     Route: 042
     Dates: start: 20150908
  2. FAULDCISPLA [Concomitant]
     Active Substance: CISPLATIN
     Indication: BILIARY CANCER METASTATIC
     Dosage: 39.8 MG, CYCLICAL
     Route: 042
     Dates: start: 20150908
  3. OMEPRAZOLE. [Concomitant]
     Active Substance: OMEPRAZOLE
     Dosage: 20 MG, QD
     Route: 065
  4. CLOPIN                             /01220707/ [Concomitant]
     Dosage: 75 MG, QD
     Route: 065
  5. RIVOTRIL [Concomitant]
     Active Substance: CLONAZEPAM
     Dosage: 0.5 MG, QD
     Route: 065
  6. DIGESAN                            /00576701/ [Concomitant]
     Dosage: UNK, UNKNOWN
     Route: 065
  7. LIPITOR [Concomitant]
     Active Substance: ATORVASTATIN CALCIUM
     Dosage: 10 MG, QD
     Route: 065
  8. PROLIVE [Concomitant]
     Dosage: UNK, QD
     Route: 065
  9. REPOFLOR [Concomitant]
     Dosage: 200 MG, BID
     Route: 065
  10. NAUSEDRON [Concomitant]
     Active Substance: ONDANSETRON HYDROCHLORIDE
     Dosage: 8 MG, EVERY 8 HRS
     Route: 065
  11. MICARDIS AMLO [Concomitant]
     Active Substance: AMLODIPINE BESYLATE\TELMISARTAN
     Dosage: UNK UNK, QD
     Route: 065
  12. GEMZAR [Suspect]
     Active Substance: GEMCITABINE HYDROCHLORIDE
     Dosage: 1593 MG, CYCLICAL
     Route: 042
     Dates: start: 20150908

REACTIONS (3)
  - Dehydration [Recovered/Resolved]
  - Diarrhoea [Recovered/Resolved]
  - Pyrexia [Recovered/Resolved]
